FAERS Safety Report 4417978-2 (Version None)
Quarter: 2004Q2

REPORT INFORMATION
  Report Type: 
  Country: None (occurrence: None)
  Receive Date: 20040622
  Receipt Date: 20031209
  Transmission Date: 20050107
  Serious: Yes (Death)
  Sender: FDA-Public Use
  Company Number: 353869

PATIENT
  Age: 48 Year
  Sex: Female
  Weight: 71.7 kg

DRUGS (11)
  1. XELODA [Suspect]
     Indication: METASTATIC NEOPLASM
     Dosage: 1800 MG DAILY ORAL
     Route: 048
     Dates: start: 20030817
  2. ZOMETA [Concomitant]
  3. PROCRIT (EPOETIN ALFA) [Concomitant]
  4. VICODIN [Concomitant]
  5. COUMADIN [Concomitant]
  6. VITAMIN B6 [Concomitant]
  7. TRAZODONE (TRAZODONE HYDROCHLORIDE) [Concomitant]
  8. AMBIEN [Concomitant]
  9. MULTIVITAMIN [Concomitant]
  10. CALCIUM (CALCIUM NOS) [Concomitant]
  11. PEPCID [Concomitant]

REACTIONS (18)
  - ANAEMIA [None]
  - ASTHENIA [None]
  - BALANCE DISORDER [None]
  - BREAST CANCER METASTATIC [None]
  - CHEST WALL PAIN [None]
  - DISEASE PROGRESSION [None]
  - DRY MOUTH [None]
  - DYSARTHRIA [None]
  - DYSGEUSIA [None]
  - DYSPNOEA EXERTIONAL [None]
  - ERYTHEMA [None]
  - GAIT DISTURBANCE [None]
  - HAEMOGLOBIN DECREASED [None]
  - OPEN WOUND [None]
  - PYREXIA [None]
  - TACHYCARDIA [None]
  - WOUND COMPLICATION [None]
  - WOUND DRAINAGE [None]
